FAERS Safety Report 5672681-6 (Version None)
Quarter: 2008Q1

REPORT INFORMATION
  Report Type: 
  Country: None (occurrence: None)
  Receive Date: 20080317
  Receipt Date: 20080306
  Transmission Date: 20080703
  Serious: Yes (Other)
  Sender: FDA-Public Use
  Company Number: 220036J08USA

PATIENT
  Age: 9 Year
  Sex: Female

DRUGS (1)
  1. SAIZEN [Suspect]
     Indication: GROWTH HORMONE DEFICIENCY
     Dosage: 1.93 MG
     Dates: start: 20080201

REACTIONS (4)
  - EYE SWELLING [None]
  - HEADACHE [None]
  - INCONTINENCE [None]
  - NAUSEA [None]
